FAERS Safety Report 9893039 (Version 3)
Quarter: 2015Q2

REPORT INFORMATION
  Report Type: Spontaneous
  Country: ES (occurrence: ES)
  Receive Date: 20140213
  Receipt Date: 20150513
  Transmission Date: 20150821
  Serious: Yes (Death, Other)
  Sender: FDA-Public Use
  Company Number: ES-BEH-2014040532

PATIENT
  Age: 2 Month
  Sex: Male

DRUGS (3)
  1. COTRIMOXAZOLE [Suspect]
     Active Substance: SULFAMETHOXAZOLE\TRIMETHOPRIM
     Indication: COMBINED IMMUNODEFICIENCY
  2. ANTIBIOTICS [Suspect]
     Active Substance: UNSPECIFIED INGREDIENT
     Indication: COMBINED IMMUNODEFICIENCY
  3. IVIG [Suspect]
     Active Substance: HUMAN IMMUNOGLOBULIN G
     Indication: COMBINED IMMUNODEFICIENCY

REACTIONS (2)
  - Cytomegalovirus infection [Fatal]
  - Drug ineffective [Fatal]
